FAERS Safety Report 8997387 (Version 5)
Quarter: 2014Q2

REPORT INFORMATION
  Report Type: Spontaneous
  Country: US (occurrence: US)
  Receive Date: 20130104
  Receipt Date: 20140514
  Transmission Date: 20141212
  Serious: Yes (Hospitalization)
  Sender: FDA-Public Use
  Company Number: US-B.I. PHARMACEUTICALS,INC./RIDGEFIELD-2013-BI-00124BP

PATIENT
  Age: 90 Year
  Sex: Female
  Weight: 49.9 kg

DRUGS (11)
  1. PRADAXA [Suspect]
     Indication: ATRIAL FIBRILLATION
     Dosage: 150 MG
     Route: 065
     Dates: start: 20101214, end: 201101
  2. PRADAXA [Suspect]
     Indication: ANTICOAGULANT THERAPY
  3. TOPROL [Concomitant]
     Dosage: 50 MG
     Route: 065
  4. BUMEX [Concomitant]
     Dosage: 4 MG
     Route: 065
  5. SYNTHROID [Concomitant]
     Dosage: 88 MCG
     Route: 065
  6. DIGOXIN [Concomitant]
     Dosage: 35.7143 MCG
     Route: 065
  7. PROTONIX [Concomitant]
     Dosage: 40 MG
     Route: 065
  8. KCL [Concomitant]
     Dosage: 20 MEQ
     Route: 065
  9. ATACAND [Concomitant]
     Dosage: 8 MG
     Route: 065
     Dates: end: 201101
  10. METOLAZONE [Concomitant]
     Dosage: 0.7143 MG
     Route: 065
     Dates: end: 201101
  11. ASA [Concomitant]
     Dosage: 81 MG
     Route: 065

REACTIONS (5)
  - Haemorrhage [Recovered/Resolved]
  - Epistaxis [Recovered/Resolved]
  - Rectal haemorrhage [Recovered/Resolved]
  - Ear haemorrhage [Recovered/Resolved]
  - Upper gastrointestinal haemorrhage [Recovered/Resolved]
